FAERS Safety Report 4699278-9 (Version None)
Quarter: 2005Q2

REPORT INFORMATION
  Report Type: 
  Country: None (occurrence: None)
  Receive Date: 20050624
  Receipt Date: 20050322
  Transmission Date: 20051028
  Serious: Yes (Other)
  Sender: FDA-Public Use
  Company Number: US-MERCK-0503USA04220

PATIENT
  Age: 53 Year
  Sex: Female
  Weight: 77 kg

DRUGS (12)
  1. VIOXX [Suspect]
     Indication: BACK PAIN
     Route: 048
     Dates: start: 20000303, end: 20040901
  2. VASOTEC [Concomitant]
     Route: 065
     Dates: start: 20000101, end: 20030101
  3. ATENOLOL [Concomitant]
     Route: 065
     Dates: start: 20010101, end: 20040901
  4. MOTRIN [Concomitant]
     Route: 065
     Dates: start: 20000101
  5. IMITREX [Concomitant]
     Route: 065
     Dates: start: 20000101
  6. IMITREX [Concomitant]
     Route: 065
     Dates: start: 20000101
  7. NITROSTAT [Concomitant]
     Route: 065
     Dates: start: 20010101
  8. LORATADINE [Concomitant]
     Route: 065
  9. PAXIL [Concomitant]
     Route: 065
  10. BUSPAR [Concomitant]
     Route: 065
  11. CALCIUM (UNSPECIFIED) [Concomitant]
     Route: 065
  12. SEROQUEL [Concomitant]
     Route: 065

REACTIONS (7)
  - ABDOMINAL PAIN UPPER [None]
  - BLOOD CHOLESTEROL INCREASED [None]
  - BLOOD TRIGLYCERIDES INCREASED [None]
  - CEREBROVASCULAR ACCIDENT [None]
  - CHEST PAIN [None]
  - CHRONIC FATIGUE SYNDROME [None]
  - HYPERTENSION [None]
